FAERS Safety Report 4916250-1 (Version None)
Quarter: 2006Q1

REPORT INFORMATION
  Report Type: 
  Country: None (occurrence: None)
  Receive Date: 20060113
  Receipt Date: 20051031
  Transmission Date: 20060701
  Serious: No
  Sender: FDA-Public Use
  Company Number: 2005SP003744

PATIENT
  Age: 79 Year
  Sex: Female
  Weight: 80.7403 kg

DRUGS (7)
  1. LUNESTA [Suspect]
     Indication: MIDDLE INSOMNIA
     Dosage: SEE IMAGE
     Route: 048
     Dates: start: 20050101, end: 20050101
  2. LUNESTA [Suspect]
     Indication: MIDDLE INSOMNIA
     Dosage: SEE IMAGE
     Route: 048
     Dates: start: 20050901, end: 20050101
  3. TEMAZEPAM [Concomitant]
  4. HYDROCHLOROTHIAZIDE [Concomitant]
  5. ATENOLOL [Concomitant]
  6. ATORVASTATIN CALCIUM [Concomitant]
  7. TRAMADOL HCL [Concomitant]

REACTIONS (9)
  - ANXIETY [None]
  - DEPRESSION [None]
  - DISTURBANCE IN ATTENTION [None]
  - DIZZINESS [None]
  - DRUG INEFFECTIVE [None]
  - FALL [None]
  - INSOMNIA [None]
  - MEMORY IMPAIRMENT [None]
  - SOMNOLENCE [None]
